FAERS Safety Report 4569120-5 (Version None)
Quarter: 2005Q1

REPORT INFORMATION
  Report Type: 
  Country: None (occurrence: None)
  Receive Date: 20050201
  Receipt Date: 20050121
  Transmission Date: 20050727
  Serious: Yes (Hospitalization, Other)
  Sender: FDA-Public Use
  Company Number: US-SHR-04-023748

PATIENT
  Age: 29 Year
  Sex: Female
  Weight: 50.7 kg

DRUGS (1)
  1. MIRENA [Suspect]
     Indication: CONTRACEPTION
     Dosage: 20 ?G/DAY, INTRA-UTERINE
     Route: 015
     Dates: start: 20030627, end: 20030703

REACTIONS (8)
  - BLOOD PRESSURE DECREASED [None]
  - HAEMATOCRIT DECREASED [None]
  - HAEMOGLOBIN DECREASED [None]
  - HAEMORRHAGE [None]
  - IUCD COMPLICATION [None]
  - THROMBOSIS [None]
  - UTERINE CERVICAL LACERATION [None]
  - WEIGHT DECREASED [None]
